FAERS Safety Report 12635029 (Version 1)
Quarter: 2016Q3

REPORT INFORMATION
  Report Type: Spontaneous
  Country: JP (occurrence: JP)
  Receive Date: 20160809
  Receipt Date: 20160809
  Transmission Date: 20161109
  Serious: Yes (Death)
  Sender: FDA-Public Use
  Company Number: JP-MALLINCKRODT-T201505664

PATIENT
  Age: 61 Year
  Sex: Male
  Weight: 63 kg

DRUGS (37)
  1. OXYCONTIN [Concomitant]
     Active Substance: OXYCODONE HYDROCHLORIDE
     Dosage: 640 MG
     Route: 048
     Dates: start: 20150904, end: 20151007
  2. AZOSEMIDE [Concomitant]
     Active Substance: AZOSEMIDE
     Dosage: 60 MG
     Route: 048
     Dates: end: 20151207
  3. MAGMITT [Concomitant]
     Active Substance: MAGNESIUM OXIDE
     Dosage: 990 MG
     Route: 048
     Dates: start: 20151205, end: 20151207
  4. ABSTRAL [Concomitant]
     Active Substance: FENTANYL CITRATE
     Indication: ANALGESIC THERAPY
     Dosage: 0.2-4 MG PRN
     Route: 060
     Dates: start: 20151017
  5. LINTON [Concomitant]
     Active Substance: HALOPERIDOL
     Dosage: 24 MG
     Route: 051
     Dates: start: 20151207, end: 20151213
  6. METHADONE [Suspect]
     Active Substance: METHADONE HYDROCHLORIDE
     Dosage: 40 MG (80 MG DAILY DOSAGE)
     Route: 048
     Dates: start: 20150917, end: 20151013
  7. METHADONE [Suspect]
     Active Substance: METHADONE HYDROCHLORIDE
     Dosage: 50 MG (100 MG DAILY DOSAGE)
     Route: 048
     Dates: start: 20151014, end: 20151104
  8. XYLOCAINE [Concomitant]
     Active Substance: LIDOCAINE HYDROCHLORIDE
     Indication: ANALGESIC THERAPY
     Dosage: 1.5 ML
     Route: 051
     Dates: end: 20151002
  9. BROTIZOLAM [Concomitant]
     Active Substance: BROTIZOLAM
     Dosage: 0.25 MG
     Route: 048
     Dates: end: 20151207
  10. OXINORM [Concomitant]
     Active Substance: OXYCODONE HYDROCHLORIDE
     Indication: ANALGESIC THERAPY
     Dosage: 100 MG, PRN
     Route: 048
     Dates: start: 20150805
  11. CERCINE [Concomitant]
     Active Substance: DIAZEPAM
     Dosage: 50 MG
     Route: 051
     Dates: start: 20151107
  12. ROPION [Concomitant]
     Active Substance: FLURBIPROFEN AXETIL
     Indication: ANALGESIC THERAPY
     Dosage: 150 MG
     Route: 051
     Dates: start: 20151207, end: 20151213
  13. METHADONE [Suspect]
     Active Substance: METHADONE HYDROCHLORIDE
     Indication: CANCER PAIN
     Dosage: 10 MG (20 MG DAILY DOSAGE)
     Route: 048
     Dates: start: 20150806, end: 20150812
  14. METHADONE [Suspect]
     Active Substance: METHADONE HYDROCHLORIDE
     Dosage: 30 MG (60 MG DAILY DOSAGE)
     Route: 048
     Dates: start: 20150903, end: 20150916
  15. METHADONE [Suspect]
     Active Substance: METHADONE HYDROCHLORIDE
     Dosage: 20 MG (40 MG DAILY DOSE)
     Route: 048
     Dates: start: 20151201, end: 20151207
  16. LYRICA [Concomitant]
     Active Substance: PREGABALIN
     Dosage: 100 MG
     Route: 048
     Dates: end: 20151207
  17. ANAPEINE [Concomitant]
     Active Substance: ROPIVACAINE HYDROCHLORIDE
     Indication: ANALGESIC THERAPY
     Dosage: 600 MG
     Route: 051
     Dates: start: 20151005, end: 20151009
  18. MAGMITT [Concomitant]
     Active Substance: MAGNESIUM OXIDE
     Dosage: 1500 MG
     Route: 048
  19. METHADONE [Suspect]
     Active Substance: METHADONE HYDROCHLORIDE
     Dosage: 40 MG (80 MG DAILY DOSE)
     Route: 048
     Dates: start: 20151126, end: 20151130
  20. OXYCONTIN [Concomitant]
     Active Substance: OXYCODONE HYDROCHLORIDE
     Dosage: 560 MG
     Route: 048
     Dates: start: 20150828, end: 20150903
  21. LOXOPROFEN [Concomitant]
     Active Substance: LOXOPROFEN
     Dosage: 180 MG
     Route: 048
     Dates: start: 20150828, end: 20151207
  22. ZYPREXA [Concomitant]
     Active Substance: OLANZAPINE
     Dosage: 5 MG
     Route: 048
     Dates: start: 20151109, end: 20151207
  23. LANSOPRAZOLE. [Concomitant]
     Active Substance: LANSOPRAZOLE
     Dosage: 30 MG
     Route: 048
     Dates: end: 20151207
  24. GLYCERIN. [Concomitant]
     Active Substance: GLYCERIN
     Dosage: 0.4 ML
     Route: 051
     Dates: start: 20151008, end: 20151008
  25. METHADONE [Suspect]
     Active Substance: METHADONE HYDROCHLORIDE
     Dosage: 10 MG (30 MG DAILY DOSAGE)
     Route: 048
     Dates: start: 20150813, end: 20150819
  26. MAGMITT [Concomitant]
     Active Substance: MAGNESIUM OXIDE
     Dosage: 750 MG
     Route: 048
     Dates: end: 20151204
  27. PHENOL. [Concomitant]
     Active Substance: PHENOL
     Dosage: 0.4 ML
     Route: 051
     Dates: start: 20151008, end: 20151008
  28. DICLOFENAC SODIUM. [Concomitant]
     Active Substance: DICLOFENAC SODIUM
     Dosage: 50 MG
     Route: 054
     Dates: start: 20151107
  29. METHADONE [Suspect]
     Active Substance: METHADONE HYDROCHLORIDE
     Dosage: 60 MG (120 MG DAILY DOSE)
     Route: 048
     Dates: start: 20151105, end: 20151125
  30. OXYCONTIN [Concomitant]
     Active Substance: OXYCODONE HYDROCHLORIDE
     Indication: ANALGESIC THERAPY
     Dosage: 480 MG
     Route: 048
     Dates: end: 20150827
  31. RINDERON V [Concomitant]
     Active Substance: BETAMETHASONE VALERATE
     Indication: ANALGESIC THERAPY
     Dosage: 4 MG
     Route: 051
     Dates: end: 20151002
  32. METHADONE [Suspect]
     Active Substance: METHADONE HYDROCHLORIDE
     Dosage: 20 MG (40 MG DAILY DOSAGE)
     Route: 048
     Dates: start: 20150820, end: 20150902
  33. OXYCONTIN [Concomitant]
     Active Substance: OXYCODONE HYDROCHLORIDE
     Dosage: 240 MG
     Route: 048
     Dates: start: 20151008, end: 20151011
  34. OXYCONTIN [Concomitant]
     Active Substance: OXYCODONE HYDROCHLORIDE
     Dosage: 160 MG
     Route: 048
     Dates: start: 20151012, end: 20151015
  35. LOXOPROFEN [Concomitant]
     Active Substance: LOXOPROFEN
     Indication: ANALGESIC THERAPY
     Dosage: 120 MG
     Route: 048
     Dates: end: 20150827
  36. KN NO.1 [Concomitant]
     Dosage: 600 ML
     Route: 051
     Dates: start: 20151207, end: 20151213
  37. OMEPRAZOLE. [Concomitant]
     Active Substance: OMEPRAZOLE
     Dosage: 20 MG
     Route: 051
     Dates: start: 20151207, end: 20151213

REACTIONS (5)
  - Anxiety [Not Recovered/Not Resolved]
  - Oedema [Not Recovered/Not Resolved]
  - Somnolence [Not Recovered/Not Resolved]
  - Rectal cancer [Fatal]
  - Altered state of consciousness [Recovering/Resolving]

NARRATIVE: CASE EVENT DATE: 20150917
